FAERS Safety Report 6171030-7 (Version None)
Quarter: 2009Q2

REPORT INFORMATION
  Report Type: 
  Country: None (occurrence: None)
  Receive Date: 20090429
  Receipt Date: 20090424
  Transmission Date: 20091009
  Serious: Yes (Hospitalization, Other)
  Sender: FDA-Public Use
  Company Number: US-JNJFOC-20090406353

PATIENT
  Sex: Female
  Weight: 108.86 kg

DRUGS (5)
  1. DURAGESIC-100 [Suspect]
     Indication: ABDOMINAL PAIN
     Route: 062
  2. DURAGESIC-100 [Suspect]
     Indication: BACK PAIN
     Route: 062
  3. OXYCODONE [Concomitant]
     Indication: BREAKTHROUGH PAIN
     Route: 048
  4. METHADONE [Concomitant]
     Indication: BREAKTHROUGH PAIN
     Route: 048
  5. ATIVAN [Concomitant]
     Indication: ANXIETY
     Route: 048

REACTIONS (5)
  - CONVULSION [None]
  - HAEMORRHAGE [None]
  - MYOCARDIAL INFARCTION [None]
  - PYREXIA [None]
  - URINARY TRACT INFECTION [None]
